FAERS Safety Report 16844827 (Version 3)
Quarter: 2022Q1

REPORT INFORMATION
  Report Type: Spontaneous
  Country: US (occurrence: US)
  Receive Date: 20190924
  Receipt Date: 20220318
  Transmission Date: 20220423
  Serious: Yes (Other)
  Sender: FDA-Public Use
  Company Number: US-BAYER-2019-169514

PATIENT
  Age: 16 Year
  Sex: Male

DRUGS (2)
  1. KOGENATE FS [Suspect]
     Active Substance: ANTIHEMOPHILIC FACTOR, HUMAN RECOMBINANT
     Indication: Factor VIII deficiency
     Dosage: 2500 IU, PRN (2 DOSES USED TO TREAT THE ADVERSE EVENT)
     Route: 042
     Dates: start: 20181217
  2. KOGENATE FS [Suspect]
     Active Substance: ANTIHEMOPHILIC FACTOR, HUMAN RECOMBINANT
     Indication: Factor VIII deficiency
     Dosage: 3910 IU
     Route: 042
     Dates: start: 20220120

REACTIONS (2)
  - Chest injury [None]
  - COVID-19 [Recovered/Resolved]

NARRATIVE: CASE EVENT DATE: 20190907
